FAERS Safety Report 21493465 (Version 3)
Quarter: 2022Q4

REPORT INFORMATION
  Report Type: Report from Study
  Country: JP (occurrence: JP)
  Receive Date: 20221021
  Receipt Date: 20221117
  Transmission Date: 20230112
  Serious: Yes (Hospitalization, Other)
  Sender: FDA-Public Use
  Company Number: JP-BRISTOL-MYERS SQUIBB COMPANY-2022-123004

PATIENT
  Age: 58 Year
  Sex: Male
  Weight: 71 kg

DRUGS (9)
  1. DEUCRAVACITINIB [Suspect]
     Active Substance: DEUCRAVACITINIB
     Indication: Psoriasis
     Dosage: 1 DF= 1 TAB?TOTAL DAILY DOSE: 1TABLET ?THE PATIENT PARTICIPATED IN THE BLINDED PARENT STUDY IM011-04
     Route: 048
     Dates: start: 20200601, end: 20221014
  2. HIRUDOID MILD [Concomitant]
     Indication: Asteatosis
     Dosage: 1DF=1 APPLICATION,
     Route: 061
     Dates: start: 20211018
  3. TACROLIMUS [Concomitant]
     Active Substance: TACROLIMUS
     Indication: Dermatitis atopic
     Dosage: 1 DOSAGE FORM= 2 APPLICATIONS TWICE A DAY [BID]?FREQUENCY: BID (BD; TWICE PER DAY) ?ROUTE: TOPICAL
     Route: 061
     Dates: start: 20220117
  4. CALCIPOTRIOL/BETAMETASONA RATIOPHARM [Concomitant]
     Indication: Psoriasis
     Dosage: 1 DF=1 APPLICATION?RESCUE MEDICATION
     Route: 061
     Dates: start: 20191118
  5. VONOPRAZAN FUMARATE [Concomitant]
     Active Substance: VONOPRAZAN FUMARATE
     Indication: Gastrooesophageal reflux disease
     Route: 048
     Dates: start: 20200501
  6. ECABET SODIUM [Concomitant]
     Active Substance: ECABET SODIUM
     Indication: Gastrooesophageal reflux disease
     Route: 048
     Dates: start: 20200501
  7. MYSER [DIFLUPREDNATE] [Concomitant]
     Indication: Eczema
     Dosage: 1 DF= 2 APPLICATIONS BID
     Route: 061
     Dates: start: 20200914
  8. CLINDAMYCIN PHOSPHATE [Concomitant]
     Active Substance: CLINDAMYCIN PHOSPHATE
     Indication: Acne
     Dosage: 1 DF= 2 APPLICATIONS BID
     Route: 061
     Dates: start: 20210426
  9. FEBUXOSTAT [Concomitant]
     Active Substance: FEBUXOSTAT
     Indication: Gout
     Route: 048
     Dates: start: 20210802

REACTIONS (1)
  - Oesophageal carcinoma [Not Recovered/Not Resolved]

NARRATIVE: CASE EVENT DATE: 20220826
